FAERS Safety Report 24624894 (Version 1)
Quarter: 2024Q4

REPORT INFORMATION
  Report Type: Spontaneous
  Country: US (occurrence: US)
  Receive Date: 20241115
  Receipt Date: 20241115
  Transmission Date: 20250115
  Serious: Yes (Hospitalization, Other)
  Sender: AMGEN
  Company Number: US-AMGEN-USASP2024220638

PATIENT
  Age: 36 Year
  Sex: Female

DRUGS (2)
  1. ADALIMUMAB [Suspect]
     Active Substance: ADALIMUMAB
     Indication: Hidradenitis
     Dosage: UNK
     Route: 065
  2. ADALIMUMAB [Suspect]
     Active Substance: ADALIMUMAB
     Indication: Inflammatory bowel disease

REACTIONS (6)
  - Failure to thrive [Unknown]
  - Delirium [Unknown]
  - Myeloperoxidase deficiency [Unknown]
  - Subcutaneous abscess [Unknown]
  - Oesophageal candidiasis [Unknown]
  - Abscess soft tissue [Unknown]
